FAERS Safety Report 17292644 (Version 1)
Quarter: 2020Q1

REPORT INFORMATION
  Report Type: Spontaneous
  Country: US (occurrence: US)
  Receive Date: 20200101
  Receipt Date: 20200101
  Transmission Date: 20200409
  Serious: No
  Sender: FDA-Public Use
  Company Number: None

PATIENT
  Age: 8 Year
  Sex: Male
  Weight: 44 kg

DRUGS (4)
  1. MERCAPTOPURINE 6964MG [Suspect]
     Active Substance: MERCAPTOPURINE
     Dates: end: 20171201
  2. METHOTREXATE 345MG [Suspect]
     Active Substance: METHOTREXATE
     Dates: end: 20171128
  3. VINCRISTINE SULFATE 5.1 MG [Suspect]
     Active Substance: VINCRISTINE SULFATE
     Dates: end: 20171108
  4. DEXAMETHASONE 97.5MG [Suspect]
     Active Substance: DEXAMETHASONE
     Dates: end: 20171112

REACTIONS (1)
  - Myelodysplastic syndrome [None]

NARRATIVE: CASE EVENT DATE: 20190909
